FAERS Safety Report 20381892 (Version 1)
Quarter: 2022Q1

REPORT INFORMATION
  Report Type: Spontaneous
  Country: NL (occurrence: NL)
  Receive Date: 20220127
  Receipt Date: 20220127
  Transmission Date: 20220423
  Serious: Yes (Disabling)
  Sender: FDA-Public Use
  Company Number: NL-LRB-00745534

PATIENT
  Sex: Male
  Weight: 87 kg

DRUGS (2)
  1. ATORVASTATIN [Suspect]
     Active Substance: ATORVASTATIN
     Indication: Arrhythmia
     Dosage: 1 DOSAGE FORM, DAILY, 1X DAILY
     Route: 065
  2. CLOPIDOGREL TABLET   75MG / Brand name not specifiedCLOPIDOGREL TAB... [Concomitant]
     Indication: Product used for unknown indication
     Dosage: TABLET, 75 MG (MILLIGRAM), UNK
     Route: 065

REACTIONS (1)
  - Weight increased [Not Recovered/Not Resolved]
